FAERS Safety Report 5225035-0 (Version None)
Quarter: 2007Q1

REPORT INFORMATION
  Report Type: 
  Country: None (occurrence: None)
  Receive Date: 20070131
  Receipt Date: 20070130
  Transmission Date: 20070707
  Serious: Yes (Hospitalization)
  Sender: FDA-Public Use
  Company Number: BR-GLAXOSMITHKLINE-A0637675A

PATIENT
  Age: 79 Year
  Sex: Female
  Weight: 62 kg

DRUGS (4)
  1. SERETIDE [Suspect]
     Route: 055
     Dates: start: 20030101
  2. CAPTOPRIL [Concomitant]
     Dates: start: 20050101
  3. ASPIRIN [Concomitant]
     Route: 048
     Dates: start: 20050101
  4. MONOCORDIL [Concomitant]
     Dates: start: 20050101

REACTIONS (2)
  - HAEMORRHAGE [None]
  - PNEUMONIA [None]
